FAERS Safety Report 8602181-2 (Version None)
Quarter: 2012Q3

REPORT INFORMATION
  Report Type: 
  Country: None (occurrence: None)
  Receive Date: 20120817
  Receipt Date: 20120813
  Transmission Date: 20120928
  Serious: Yes (Death, Hospitalization)
  Sender: FDA-Public Use
  Company Number: CA-JNJFOC-20120309506

PATIENT
  Sex: Male
  Weight: 114 kg

DRUGS (6)
  1. USTEKINUMAB [Suspect]
     Indication: PSORIASIS
     Route: 058
     Dates: start: 20120130
  2. ALTACE [Concomitant]
  3. HYDROCHLOROTHIAZIDE [Concomitant]
  4. USTEKINUMAB [Suspect]
     Route: 058
     Dates: start: 20110815
  5. FLEXERIL [Concomitant]
  6. NITROGLYCERIN [Concomitant]

REACTIONS (1)
  - MYELOID LEUKAEMIA [None]
